FAERS Safety Report 12893218 (Version 1)
Quarter: 2016Q4

REPORT INFORMATION
  Report Type: Spontaneous
  Country: US (occurrence: US)
  Receive Date: 20161027
  Receipt Date: 20161027
  Transmission Date: 20170207
  Serious: Yes (Hospitalization)
  Sender: FDA-Public Use
  Company Number: None

PATIENT
  Age: 19 Year
  Sex: Female

DRUGS (1)
  1. TRETINOIN 10MG CAP TEVA [Suspect]
     Active Substance: TRETINOIN
     Indication: NEOPLASM MALIGNANT
     Dosage: 20MG BID FOR 14 DAYS PO
     Route: 048
     Dates: start: 20160224

REACTIONS (2)
  - Leukaemia recurrent [None]
  - Hospitalisation [None]

NARRATIVE: CASE EVENT DATE: 201610
